FAERS Safety Report 4735239-9 (Version None)
Quarter: 2005Q3

REPORT INFORMATION
  Report Type: 
  Country: None (occurrence: None)
  Receive Date: 20050729
  Receipt Date: 20050720
  Transmission Date: 20060218
  Serious: Yes (Hospitalization, Other)
  Sender: FDA-Public Use
  Company Number: 2005095393

PATIENT
  Age: 62 Year
  Sex: Male

DRUGS (2)
  1. GEODON [Suspect]
     Indication: BIPOLAR DISORDER
     Dosage: 160 MG (80 MG, 2 IN 1 D),
     Dates: start: 20050601, end: 20050601
  2. DEPAKOTE [Concomitant]

REACTIONS (10)
  - BRADYCARDIA [None]
  - CARDIAC ARREST [None]
  - CARDIO-RESPIRATORY ARREST [None]
  - CARDIOVASCULAR DISORDER [None]
  - MENTAL DISORDER [None]
  - PYREXIA [None]
  - RASH [None]
  - SICK SINUS SYNDROME [None]
  - TACHYCARDIA [None]
  - VENTRICULAR ARRHYTHMIA [None]
